FAERS Safety Report 12584833 (Version 2)
Quarter: 2016Q3

REPORT INFORMATION
  Report Type: Report from Study
  Country: US (occurrence: US)
  Receive Date: 20160722
  Receipt Date: 20160727
  Transmission Date: 20161109
  Serious: Yes (Hospitalization)
  Sender: FDA-Public Use
  Company Number: US-ACTELION-A-US2016-139697

PATIENT
  Age: 49 Year
  Sex: Male

DRUGS (4)
  1. XARELTO [Concomitant]
     Active Substance: RIVAROXABAN
  2. VENTAVIS [Suspect]
     Active Substance: ILOPROST
     Indication: PULMONARY ARTERIAL HYPERTENSION
     Dosage: 5 MCG, 6-9X DAILY
     Route: 055
     Dates: start: 20160422
  3. REVATIO [Suspect]
     Active Substance: SILDENAFIL CITRATE
     Indication: PRODUCT USED FOR UNKNOWN INDICATION
     Route: 048
  4. LETAIRIS [Concomitant]
     Active Substance: AMBRISENTAN

REACTIONS (7)
  - Adverse reaction [Unknown]
  - Pulmonary hypertension [Unknown]
  - Left ventricular failure [Unknown]
  - Fluid retention [Unknown]
  - Petechiae [Unknown]
  - Oxygen saturation decreased [Unknown]
  - Feeling hot [Unknown]
